FAERS Safety Report 17068091 (Version 1)
Quarter: 2019Q4

REPORT INFORMATION
  Report Type: Spontaneous
  Country: NL (occurrence: NL)
  Receive Date: 20191122
  Receipt Date: 20191122
  Transmission Date: 20200122
  Serious: Yes (Hospitalization)
  Sender: FDA-Public Use
  Company Number: NL-ALLERGAN-1946667US

PATIENT
  Sex: Male
  Weight: 80 kg

DRUGS (5)
  1. URSOCHOL [Concomitant]
     Active Substance: URSODIOL
  2. PREDNISON [Concomitant]
     Active Substance: PREDNISONE
  3. AZATHIOPRINE. [Concomitant]
     Active Substance: AZATHIOPRINE
  4. CALCI CHEW [Concomitant]
  5. MESALAZINE UNK [Suspect]
     Active Substance: MESALAMINE
     Indication: COLITIS ULCERATIVE
     Dosage: 250 MG, Q12H, 2 DD1
     Route: 048
     Dates: start: 20181001

REACTIONS (2)
  - Nephrolithiasis [Recovering/Resolving]
  - Calculus urinary [Recovering/Resolving]
